FAERS Safety Report 9224064 (Version 2)
Quarter: 2013Q2

REPORT INFORMATION
  Report Type: Spontaneous
  Country: DE (occurrence: DE)
  Receive Date: 20130411
  Receipt Date: 20130411
  Transmission Date: 20140414
  Serious: Yes (Death, Life-Threatening, Hospitalization, Other)
  Sender: FDA-Public Use
  Company Number: DE-009507513-0602DEU00036

PATIENT
  Age: 81 Year
  Sex: Female
  Weight: 60 kg

DRUGS (9)
  1. HYDROCHLOROTHIAZIDE [Concomitant]
     Dosage: 25 MG, QD
     Route: 048
     Dates: start: 20021209, end: 20060122
  2. CALCIUM (UNSPECIFIED) (+) VITAMIN D (UNSPECIFIED) [Concomitant]
     Dosage: 1 UNK, QD
     Route: 048
     Dates: start: 20030823, end: 20060122
  3. FOSAMAX 10MG [Suspect]
     Dosage: 70 MG, QW
     Route: 048
     Dates: start: 20030823, end: 20060121
  4. FOSAVANCE [Suspect]
  5. BONEFOS [Suspect]
     Indication: OSTEOPOROSIS
     Dosage: 1 DF, QW
     Route: 048
     Dates: start: 20000701, end: 20060122
  6. IBUPROFEN [Suspect]
  7. GRIPPE-IMPFSTOFF RATIOPHARM [Suspect]
  8. TETANUS TOXOID [Suspect]
  9. PRINIVIL [Concomitant]
     Dosage: 20 MG, QD
     Route: 048
     Dates: start: 20021209, end: 20060122

REACTIONS (36)
  - Pulmonary embolism [Fatal]
  - Dysphagia [Fatal]
  - Non-cardiac chest pain [Fatal]
  - Dyspnoea [Unknown]
  - Confusional state [Fatal]
  - Humerus fracture [Unknown]
  - Radius fracture [Unknown]
  - Concussion [Unknown]
  - Contusion [Unknown]
  - Laceration [Unknown]
  - Contusion [Unknown]
  - Haemarthrosis [Unknown]
  - Pneumonia bacterial [Unknown]
  - Gastrointestinal inflammation [Unknown]
  - Respiratory failure [Unknown]
  - Urinary retention [Unknown]
  - Cardiac failure [Unknown]
  - Atrial fibrillation [Unknown]
  - Cardiovascular insufficiency [Unknown]
  - Fungal infection [Fatal]
  - Osteonecrosis of jaw [Fatal]
  - Oesophageal discomfort [Fatal]
  - Bronchitis [Fatal]
  - Drug administration error [Unknown]
  - Visual impairment [Unknown]
  - Bone loss [Unknown]
  - Decreased appetite [Unknown]
  - Asthma [Unknown]
  - Restlessness [Unknown]
  - Pyrexia [Unknown]
  - Renal cyst [Unknown]
  - Oesophagitis [Unknown]
  - Diarrhoea [Unknown]
  - Leukocytosis [Unknown]
  - Ear pain [Unknown]
  - Mucous stools [Unknown]
